FAERS Safety Report 6340127-0 (Version None)
Quarter: 2009Q3

REPORT INFORMATION
  Report Type: 
  Country: None (occurrence: None)
  Receive Date: 20090903
  Receipt Date: 20090826
  Transmission Date: 20100115
  Serious: Yes (Hospitalization, Disabling)
  Sender: FDA-Public Use
  Company Number: FR-MERCK-0908FRA00056

PATIENT
  Age: 50 Year
  Sex: Male
  Weight: 80 kg

DRUGS (13)
  1. ISENTRESS [Suspect]
     Indication: HIV INFECTION
     Route: 048
     Dates: start: 20071018
  2. MARAVIROC [Suspect]
     Indication: HIV INFECTION
     Route: 048
     Dates: start: 20060331
  3. TIPRANAVIR [Concomitant]
     Indication: HIV INFECTION
     Route: 048
     Dates: start: 20060331
  4. RITONAVIR [Concomitant]
     Indication: HIV INFECTION
     Route: 048
     Dates: start: 20060331
  5. EMTRICITABINE AND TENOFOVIR DISOPROXIL FUMARATE [Concomitant]
     Indication: HIV INFECTION
     Route: 048
     Dates: start: 20070525
  6. VALACYCLOVIR HYDROCHLORIDE [Concomitant]
     Route: 048
     Dates: start: 20070608
  7. PREGABALIN [Concomitant]
     Route: 065
     Dates: start: 20070525
  8. URIDINE 5'-TRIPHOSPHATE [Concomitant]
     Route: 065
     Dates: start: 20070525
  9. RIFABUTIN [Concomitant]
     Route: 065
     Dates: start: 20071123
  10. PYRAZINAMIDE [Concomitant]
     Route: 065
     Dates: start: 20071123
  11. ISONIAZID [Concomitant]
     Route: 065
     Dates: start: 20071123
  12. SULFAMETHOXAZOLE AND TRIMETHOPRIM [Concomitant]
     Route: 065
     Dates: start: 20071031
  13. IBUPROFEN [Concomitant]
     Route: 065
     Dates: start: 20070312, end: 20080801

REACTIONS (1)
  - HODGKIN'S DISEASE [None]
